FAERS Safety Report 9411057 (Version 1)
Quarter: 2013Q3

REPORT INFORMATION
  Report Type: Spontaneous
  Country: US (occurrence: US)
  Receive Date: 20130720
  Receipt Date: 20130720
  Transmission Date: 20140515
  Serious: Yes (Hospitalization)
  Sender: FDA-Public Use
  Company Number: US-AMGEN-USASP2013050125

PATIENT
  Age: 17 Year
  Sex: Female

DRUGS (12)
  1. ENBREL [Suspect]
     Indication: RHEUMATIC DISORDER
     Dosage: UNK
     Route: 065
  2. METHOTREXATE [Concomitant]
     Dosage: UNK
  3. CHOLECALCIFEROL [Concomitant]
     Dosage: UNK
  4. HUMALOG [Concomitant]
     Dosage: UNK
  5. LANTUS [Concomitant]
     Dosage: UNK
  6. LORAZEPAM [Concomitant]
     Dosage: UNK
  7. METHIMAZOLE [Concomitant]
     Dosage: UNK
  8. QUETIAPINE [Concomitant]
     Dosage: UNK
  9. SERTRALINE [Concomitant]
     Dosage: UNK
  10. NAPROXEN [Concomitant]
     Dosage: UNK
  11. FOLIC ACID [Concomitant]
     Dosage: UNK
  12. MULTIVITAMINS PLUS IRON [Concomitant]
     Dosage: UNK

REACTIONS (1)
  - Hospitalisation [Unknown]
